FAERS Safety Report 4279226-6 (Version None)
Quarter: 2004Q1

REPORT INFORMATION
  Report Type: 
  Country: None (occurrence: None)
  Receive Date: 20040122
  Receipt Date: 20040114
  Transmission Date: 20041129
  Serious: Yes (Other)
  Sender: FDA-Public Use
  Company Number: 2004194159GB

PATIENT
  Age: 45 Year
  Sex: Male

DRUGS (6)
  1. ZYVOX [Suspect]
     Dosage: ORAL
     Route: 048
     Dates: start: 20030901
  2. PREDNISOLONE [Concomitant]
  3. FOSAMAX [Concomitant]
  4. GABAPENTIN [Concomitant]
  5. METHOTREXATE [Concomitant]
  6. CALCIUM [Concomitant]

REACTIONS (2)
  - OPTIC NEURITIS [None]
  - VISION BLURRED [None]
